FAERS Safety Report 9088047 (Version 1)
Quarter: 2013Q1

REPORT INFORMATION
  Report Type: Spontaneous
  Country: US (occurrence: US)
  Receive Date: 20130218
  Receipt Date: 20130218
  Transmission Date: 20140127
  Serious: Yes (Other)
  Sender: FDA-Public Use
  Company Number: CHPA2013US003104

PATIENT
  Sex: Male

DRUGS (3)
  1. VOLTAREN GEL [Suspect]
     Indication: ARTHRITIS
     Dosage: UNK, UNK
     Route: 061
  2. CELEBREX [Suspect]
     Dosage: UNK, UNK
     Route: 065
  3. ACETYLSALICYLIC ACID [Concomitant]
     Dosage: 2 DF, QD

REACTIONS (1)
  - Renal failure acute [Unknown]
